FAERS Safety Report 19486732 (Version 5)
Quarter: 2021Q3

REPORT INFORMATION
  Report Type: Report from Study
  Country: US (occurrence: US)
  Receive Date: 20210702
  Receipt Date: 20210924
  Transmission Date: 20211014
  Serious: Yes (Hospitalization, Other)
  Sender: FDA-Public Use
  Company Number: NVSC2021US143259

PATIENT
  Age: 48 Year
  Sex: Female
  Weight: 58.9 kg

DRUGS (13)
  1. TREPROSTINIL. [Suspect]
     Active Substance: TREPROSTINIL
     Dosage: UNK, CONT (STRENGTH 10 MG/ML) (0.045 ?G/KG)
     Route: 058
     Dates: start: 20210613
  2. ORENITRAM [Suspect]
     Active Substance: TREPROSTINIL
     Dosage: 0.125 MG
     Route: 048
     Dates: start: 20210620
  3. COUMADIN [Concomitant]
     Active Substance: WARFARIN SODIUM
     Indication: PRODUCT USED FOR UNKNOWN INDICATION
     Dosage: UNK
     Route: 065
  4. TREPROSTINIL. [Suspect]
     Active Substance: TREPROSTINIL
     Dosage: 12 NG/KG/MIN, CONT (STRENGTH: 2.5 MG/ML)
     Route: 058
  5. TREPROSTINIL. [Suspect]
     Active Substance: TREPROSTINIL
     Dosage: UNK (DOSE DECREASED)
     Route: 058
     Dates: start: 20210620
  6. ORENITRAM [Suspect]
     Active Substance: TREPROSTINIL
     Dosage: 4.875 MG, Q8H
     Route: 048
     Dates: start: 20210620
  7. ORENITRAM [Suspect]
     Active Substance: TREPROSTINIL
     Dosage: UNK
     Route: 065
     Dates: end: 20210911
  8. TREPROSTINIL. [Suspect]
     Active Substance: TREPROSTINIL
     Dosage: UNK, CONT (STRENGTH: 2.5 MG/ML) (2 NG/KG/MIN)
     Route: 058
  9. ORENITRAM [Suspect]
     Active Substance: TREPROSTINIL
     Indication: PULMONARY ARTERIAL HYPERTENSION
     Dosage: 0.25 MG
     Route: 048
     Dates: start: 20170721
  10. ORENITRAM [Suspect]
     Active Substance: TREPROSTINIL
     Dosage: 1 MG
     Route: 048
     Dates: start: 20210620
  11. TREPROSTINIL. [Suspect]
     Active Substance: TREPROSTINIL
     Indication: PULMONARY ARTERIAL HYPERTENSION
     Dosage: UNK, CONT (STRENGTH 10 MG/ML) (45 NG/KG/ MIN)
     Route: 058
     Dates: start: 20210610
  12. ORENITRAM [Suspect]
     Active Substance: TREPROSTINIL
     Dosage: 2.5 MG
     Route: 048
     Dates: start: 20210620
  13. ORENITRAM [Suspect]
     Active Substance: TREPROSTINIL
     Dosage: UNK
     Route: 048

REACTIONS (11)
  - Cardiac failure congestive [Unknown]
  - Right ventricular failure [Not Recovered/Not Resolved]
  - Condition aggravated [Unknown]
  - Life expectancy shortened [Unknown]
  - Fatigue [Unknown]
  - Arterial disorder [Not Recovered/Not Resolved]
  - Hypotension [Recovering/Resolving]
  - Oedema [Unknown]
  - Right ventricular systolic pressure increased [Not Recovered/Not Resolved]
  - Fluid overload [Not Recovered/Not Resolved]
  - Dyspnoea [Not Recovered/Not Resolved]

NARRATIVE: CASE EVENT DATE: 202012
